FAERS Safety Report 24717539 (Version 1)
Quarter: 2024Q4

REPORT INFORMATION
  Report Type: Spontaneous
  Country: US (occurrence: US)
  Receive Date: 20241210
  Receipt Date: 20241210
  Transmission Date: 20250114
  Serious: No
  Sender: Haleon PLC
  Company Number: US-HALEON-2214165

PATIENT
  Sex: Male

DRUGS (1)
  1. GAVISCON REGULAR STRENGTH (ALUMINUM HYDROXIDE\MAGNESIUM TRISILICATE) [Suspect]
     Active Substance: ALUMINUM HYDROXIDE\MAGNESIUM TRISILICATE
     Indication: Dyspepsia

REACTIONS (1)
  - Drug ineffective [Unknown]
